FAERS Safety Report 22174684 (Version 1)
Quarter: 2023Q2

REPORT INFORMATION
  Report Type: Spontaneous
  Country: US (occurrence: None)
  Receive Date: 20230405
  Receipt Date: 20230405
  Transmission Date: 20230721
  Serious: Yes (Other)
  Sender: FDA-Public Use
  Company Number: US-Hikma Pharmaceuticals USA Inc.-US-H14001-23-00939

PATIENT
  Sex: Female

DRUGS (12)
  1. METHYLPREDNISOLONE [Suspect]
     Active Substance: METHYLPREDNISOLONE
     Indication: Still^s disease
     Dosage: UNKNOWN
     Route: 042
     Dates: start: 201806
  2. METHYLPREDNISOLONE [Suspect]
     Active Substance: METHYLPREDNISOLONE
     Route: 042
     Dates: start: 201901
  3. PREDNISOLONE [Suspect]
     Active Substance: PREDNISOLONE
     Indication: Still^s disease
     Route: 048
     Dates: start: 201901
  4. PREDNISOLONE [Suspect]
     Active Substance: PREDNISOLONE
     Route: 048
     Dates: start: 201806
  5. PREDNISOLONE [Suspect]
     Active Substance: PREDNISOLONE
     Dosage: (BETWEEN 0.5 AND 1 MG/KG/D)
     Route: 048
  6. ANAKINRA [Concomitant]
     Active Substance: ANAKINRA
     Indication: Still^s disease
     Route: 065
     Dates: start: 201712
  7. ANAKINRA [Concomitant]
     Active Substance: ANAKINRA
     Route: 065
     Dates: start: 201806
  8. ANAKINRA [Concomitant]
     Active Substance: ANAKINRA
     Route: 065
     Dates: start: 201901
  9. METHOTREXATE [Concomitant]
     Active Substance: METHOTREXATE
     Indication: Still^s disease
     Route: 058
     Dates: start: 201901
  10. VITAMIN D [Concomitant]
     Active Substance: VITAMIN D NOS
     Indication: Vitamin supplementation
     Dosage: UNKNOWN
     Route: 065
  11. CANAKINUMAB [Concomitant]
     Active Substance: CANAKINUMAB
     Indication: Still^s disease
     Route: 065
     Dates: start: 202001
  12. TACROLIMUS [Concomitant]
     Active Substance: TACROLIMUS
     Indication: Prophylaxis against graft versus host disease
     Dosage: UNKNOWN
     Route: 065

REACTIONS (6)
  - Joint dislocation [Unknown]
  - Osteopenia [Unknown]
  - Cushing^s syndrome [Unknown]
  - Weight increased [Unknown]
  - Cataract [Unknown]
  - Spinal fracture [Unknown]
